FAERS Safety Report 8638226 (Version 2)
Quarter: 2012Q4

REPORT INFORMATION
  Report Type: 
  Country: US (occurrence: US)
  Receive Date: 20120627
  Receipt Date: 20121211
  Transmission Date: 20130627
  Serious: Yes (Death)
  Sender: FDA-Public Use
  Company Number: US-ROCHE-1081576

PATIENT
  Sex: Female
  Weight: 43.13 kg

DRUGS (4)
  1. CELLCEPT [Suspect]
     Indication: MYASTHENIA GRAVIS
     Route: 048
     Dates: start: 2005, end: 20111211
  2. MESTINON [Concomitant]
  3. GABAPENTIN [Concomitant]
  4. CELEXA [Concomitant]

REACTIONS (1)
  - Myasthenia gravis [Fatal]
